FAERS Safety Report 6983824-6 (Version None)
Quarter: 2010Q3

REPORT INFORMATION
  Report Type: 
  Country: None (occurrence: None)
  Receive Date: 20100914
  Receipt Date: 20090327
  Transmission Date: 20110219
  Serious: No
  Sender: FDA-Public Use
  Company Number: US-WYE-H08281309

PATIENT
  Sex: Female
  Weight: 77.18 kg

DRUGS (1)
  1. ADVIL LIQUI-GELS [Suspect]
     Indication: TOOTHACHE
     Route: 048
     Dates: start: 20090216, end: 20090216

REACTIONS (2)
  - PRODUCT QUALITY ISSUE [None]
  - PRURITUS [None]
